FAERS Safety Report 12061060 (Version 3)
Quarter: 2016Q1

REPORT INFORMATION
  Report Type: Report from Study
  Country: US (occurrence: US)
  Receive Date: 20160210
  Receipt Date: 20160330
  Transmission Date: 20160526
  Serious: Yes (Other)
  Sender: FDA-Public Use
  Company Number: US-AMGEN-USASL2016016060

PATIENT
  Age: 52 Year
  Sex: Male

DRUGS (2)
  1. ENBREL [Suspect]
     Active Substance: ETANERCEPT
     Indication: PSORIATIC ARTHROPATHY
  2. ENBREL [Suspect]
     Active Substance: ETANERCEPT
     Indication: PSORIASIS
     Dosage: 50 MG, UNK
     Route: 065
     Dates: start: 200212

REACTIONS (8)
  - Upper respiratory tract infection [Recovering/Resolving]
  - Back pain [Unknown]
  - Skin lesion [Unknown]
  - Malaise [Unknown]
  - Weight increased [Unknown]
  - Injection site urticaria [Unknown]
  - Renal cyst [Unknown]
  - Depression [Unknown]

NARRATIVE: CASE EVENT DATE: 20151231
